FAERS Safety Report 6387564-6 (Version None)
Quarter: 2009Q4

REPORT INFORMATION
  Report Type: 
  Country: None (occurrence: None)
  Receive Date: 20091005
  Receipt Date: 20090929
  Transmission Date: 20100525
  Serious: Yes (Hospitalization, Other)
  Sender: FDA-Public Use
  Company Number: BR-BAYER-200922396LA

PATIENT
  Age: 22 Year
  Sex: Male

DRUGS (4)
  1. BETAFERON [Suspect]
     Indication: MULTIPLE SCLEROSIS
     Dosage: BETAJECT
     Route: 058
     Dates: start: 19980101
  2. CARBAMAZEPINE [Concomitant]
     Indication: DEPRESSION
     Dosage: PER DAY
     Route: 048
     Dates: start: 20060101
  3. SENOFIBERATE [Concomitant]
     Indication: BLOOD DISORDER
     Dosage: AT NIGHT
     Route: 048
     Dates: start: 20080801
  4. ENALAPRIL MALEATE [Concomitant]
     Indication: HYPERTENSION
     Route: 048
     Dates: start: 20080801

REACTIONS (4)
  - ARTHRALGIA [None]
  - CONVULSION [None]
  - FALL [None]
  - LIGAMENT RUPTURE [None]
